FAERS Safety Report 19454764 (Version 1)
Quarter: 2021Q2

REPORT INFORMATION
  Report Type: Spontaneous
  Country: FI (occurrence: FI)
  Receive Date: 20210623
  Receipt Date: 20210623
  Transmission Date: 20210717
  Serious: Yes (Hospitalization, Other)
  Sender: FDA-Public Use
  Company Number: FI-TAKEDA-2021TUS038376

PATIENT
  Age: 32 Year
  Sex: Female

DRUGS (6)
  1. PROPRAL [Concomitant]
     Active Substance: PROPRANOLOL HYDROCHLORIDE
     Indication: ANXIETY
     Route: 048
  2. 489 (LISDEXAMFETAMINE DIMESYLATE) [Suspect]
     Active Substance: LISDEXAMFETAMINE DIMESYLATE
     Indication: ATTENTION DEFICIT HYPERACTIVITY DISORDER
     Dosage: 30 MILLIGRAM, QD
     Route: 048
     Dates: start: 20210301, end: 20210330
  3. OPAMOX [Concomitant]
     Active Substance: OXAZEPAM
     Indication: ANXIETY
     Route: 048
  4. KETIPINOR [Concomitant]
     Active Substance: QUETIAPINE FUMARATE
     Indication: SLEEP DISORDER
     Route: 048
  5. MIRENA [Concomitant]
     Active Substance: LEVONORGESTREL
     Indication: CONTRACEPTION
     Route: 015
  6. VOXRA [Concomitant]
     Active Substance: BUPROPION HYDROCHLORIDE
     Indication: MENTAL DISORDER
     Dosage: 150 MILLIGRAM, QD
     Route: 048
     Dates: end: 20210330

REACTIONS (5)
  - Vasospasm [Unknown]
  - Cerebellar infarction [Unknown]
  - Psychotic disorder [Unknown]
  - Stress cardiomyopathy [Unknown]
  - Vasoconstriction [Unknown]

NARRATIVE: CASE EVENT DATE: 20210401
